FAERS Safety Report 23024526 (Version 1)
Quarter: 2023Q4

REPORT INFORMATION
  Report Type: Spontaneous
  Country: NL (occurrence: NL)
  Receive Date: 20231004
  Receipt Date: 20231004
  Transmission Date: 20240110
  Serious: Yes (Other)
  Sender: FDA-Public Use
  Company Number: NL-LRB-00908938

PATIENT
  Age: 78 Year
  Sex: Female
  Weight: 68 kg

DRUGS (11)
  1. ANASTROZOLE [Suspect]
     Active Substance: ANASTROZOLE
     Indication: Breast cancer
     Dosage: 1 MILLIGRAM (TABLET, 1 MG (MILLIGRAM),
     Route: 065
     Dates: start: 20230711, end: 20230719
  2. ASPIRIN [Concomitant]
     Active Substance: ASPIRIN
     Indication: Product used for unknown indication
     Dosage: 80 MILLIGRAM (TABLET, 80 MG (MILLIGRAM)
     Route: 065
  3. AZITHROMYCIN ANHYDROUS [Concomitant]
     Active Substance: AZITHROMYCIN ANHYDROUS
     Indication: Product used for unknown indication
     Dosage: 250 MILLIGRAM (TABLET, 250 MG (MILLIGRAM))
     Route: 065
  4. CANDESARTAN [Concomitant]
     Active Substance: CANDESARTAN
     Indication: Product used for unknown indication
     Dosage: 4 MILLIGRAM (TABLET, 4 MG (MILLIGRAM)
     Route: 065
  5. CHOLECALCIFEROL [Concomitant]
     Active Substance: CHOLECALCIFEROL
     Indication: Product used for unknown indication
     Dosage: 800 UNK (CAPSULE, 800UNIT)
     Route: 065
  6. DULOXETINE [Concomitant]
     Active Substance: DULOXETINE
     Indication: Product used for unknown indication
     Dosage: 30 MILLIGRAM (MAAGSAPRESISTENTE CAPSULE, 30 MG (MILLIGRAM)
     Route: 065
  7. ESOMEPRAZOLE [Concomitant]
     Active Substance: ESOMEPRAZOLE
     Indication: Product used for unknown indication
     Dosage: UNK (MAAGSAPRESISTENTE CAPSULE, 20 MG (MILLIGRAM)
     Route: 065
  8. HYDROXOCOBALAMIN [Concomitant]
     Active Substance: HYDROXOCOBALAMIN
     Indication: Product used for unknown indication
     Dosage: 500 MCG/ML (INJECTIEVLOEISTOF, 500 ?G/ML (MICROGRAM PER MILLILITER))
     Route: 065
  9. INSULIN NOS [Concomitant]
     Active Substance: INSULIN NOS
     Indication: Product used for unknown indication
     Dosage: UNK (INJECTIEVLOEISTOF, 100 EENHEDEN/ML (EENHEDEN PER MILLILITER))
     Route: 065
  10. ROSUVASTATIN [Concomitant]
     Active Substance: ROSUVASTATIN
     Indication: Product used for unknown indication
     Dosage: 10 MILLIGRAM (TABLET, 10 MG (MILLIGRAM))
     Route: 065
  11. ZOLPIDEM [Concomitant]
     Active Substance: ZOLPIDEM TARTRATE
     Indication: Product used for unknown indication
     Dosage: 10 MILLIGRAM (TABLET, 10 MG (MILLIGRAM))
     Route: 065

REACTIONS (2)
  - Diabetes mellitus inadequate control [Recovered/Resolved]
  - Hyperglycaemia [Recovered/Resolved]
